FAERS Safety Report 11343794 (Version 1)
Quarter: 2015Q3

REPORT INFORMATION
  Report Type: Other
  Country: US (occurrence: US)
  Receive Date: 20150806
  Receipt Date: 20150806
  Transmission Date: 20151125
  Serious: Yes (Hospitalization)
  Sender: FDA-Public Use
  Company Number: US-DEXPHARM-20150783

PATIENT
  Age: 14 Year
  Sex: Female

DRUGS (5)
  1. MELATONIN [Suspect]
     Active Substance: MELATONIN
  2. CITALOPRAM [Suspect]
     Active Substance: CITALOPRAM HYDROBROMIDE
  3. DOXYCYCLINE. [Suspect]
     Active Substance: DOXYCYCLINE
  4. OXCARBAZEPINE. [Suspect]
     Active Substance: OXCARBAZEPINE
  5. OMEPRAZOLE. [Suspect]
     Active Substance: OMEPRAZOLE

REACTIONS (4)
  - Depression [Unknown]
  - Vomiting [Unknown]
  - Suicide attempt [Unknown]
  - Intentional overdose [Unknown]
